FAERS Safety Report 20657400 (Version 2)
Quarter: 2024Q3

REPORT INFORMATION
  Report Type: Spontaneous
  Country: PL (occurrence: PL)
  Receive Date: 20220331
  Receipt Date: 20240817
  Transmission Date: 20241017
  Serious: Yes (Hospitalization, Other)
  Sender: ROCHE
  Company Number: PL-KRKA-PL2022K02860LIT

PATIENT
  Age: 17 Year
  Sex: Female

DRUGS (17)
  1. RITUXIMAB [Suspect]
     Active Substance: RITUXIMAB
     Indication: Epstein-Barr virus infection reactivation
     Dosage: 375 MG/M2, PER WEEK
     Route: 065
  2. TACROLIMUS [Suspect]
     Active Substance: TACROLIMUS
     Indication: Epstein-Barr virus infection reactivation
     Route: 065
  3. CYCLOSPORINE [Suspect]
     Active Substance: CYCLOSPORINE
     Indication: Prophylaxis against graft versus host disease
     Route: 065
  4. THYMOGLOBULINE [Suspect]
     Active Substance: LAPINE T-LYMPHOCYTE IMMUNE GLOBULIN
     Indication: Lymphodepletion
     Dosage: 7.5 MG/KG
     Route: 065
  5. FLUDARABINE [Suspect]
     Active Substance: FLUDARABINE PHOSPHATE
     Indication: Product used for unknown indication
     Dosage: 30 MG/M2, PER DAY
     Route: 065
  6. IMATINIB [Suspect]
     Active Substance: IMATINIB
     Indication: Acute lymphocytic leukaemia
     Route: 065
  7. TREOSULFAN [Suspect]
     Active Substance: TREOSULFAN
     Indication: Product used for unknown indication
     Dosage: 14 G/M2 DAILY FOR 3 DAYS
     Route: 065
  8. GANCICLOVIR [Concomitant]
     Active Substance: GANCICLOVIR
     Indication: Infection prophylaxis
     Dosage: 10 MG/KG, PER DAY
     Route: 065
  9. IMMUNE GLOBULIN [Concomitant]
     Indication: Infection prophylaxis
  10. PENICILLIN V [Concomitant]
     Active Substance: PENICILLIN V
     Indication: Infection prophylaxis
  11. CLINDAMYCIN [Concomitant]
     Active Substance: CLINDAMYCIN
  12. VANCOMYCIN [Concomitant]
     Active Substance: VANCOMYCIN
     Indication: Staphylococcal bacteraemia
  13. COTRIMOXAZOLE [Concomitant]
     Active Substance: SULFAMETHOXAZOLE\TRIMETHOPRIM
     Indication: Infection prophylaxis
  14. CIDOFOVIR [Concomitant]
     Active Substance: CIDOFOVIR
     Indication: BK polyomavirus test positive
  15. POSACONAZOLE [Concomitant]
     Active Substance: POSACONAZOLE
     Indication: Febrile neutropenia
  16. MEROPENEM [Concomitant]
     Active Substance: MEROPENEM
     Indication: Febrile neutropenia
  17. FLUCONAZOLE [Concomitant]
     Active Substance: FLUCONAZOLE
     Indication: Infection prophylaxis

REACTIONS (14)
  - Epstein-Barr virus infection reactivation [Recovered/Resolved]
  - Cystitis haemorrhagic [Recovering/Resolving]
  - Cerebral toxoplasmosis [Recovering/Resolving]
  - BK polyomavirus test positive [Recovering/Resolving]
  - Cytomegalovirus infection reactivation [Recovered/Resolved]
  - Adenovirus reactivation [Recovered/Resolved]
  - Herpes simplex reactivation [Recovering/Resolving]
  - Cytomegalovirus viraemia [Recovering/Resolving]
  - Neurological symptom [Recovered/Resolved]
  - Viral haemorrhagic cystitis [Recovered/Resolved]
  - Brain abscess [Recovered/Resolved]
  - Gastrointestinal viral infection [Recovered/Resolved]
  - Oral herpes [Recovered/Resolved]
  - Staphylococcal bacteraemia [Recovered/Resolved]
